FAERS Safety Report 6962453 (Version 2)
Quarter: 2019Q3

REPORT INFORMATION
  Report Type: Spontaneous
  Country: GB (occurrence: GB)
  Receive Date: 20090407
  Receipt Date: 20190717
  Transmission Date: 20191005
  Serious: Yes (Death)
  Sender: FDA-Public Use
  Company Number: GB-TEVA-190540ISR

PATIENT
  Age: 79 Year
  Sex: Male
  Weight: 68.4 kg

DRUGS (8)
  1. ACETYLCYSTEINE. [Suspect]
     Active Substance: ACETYLCYSTEINE
     Indication: IDIOPATHIC PULMONARY FIBROSIS
     Dosage: 1800 MILLIGRAM DAILY;
     Route: 048
     Dates: start: 20081114, end: 20081226
  2. PREDNISOLONE. [Suspect]
     Active Substance: PREDNISOLONE
     Route: 065
  3. WARFARIN [Concomitant]
     Active Substance: WARFARIN
  4. ALENDRONIC ACID [Suspect]
     Active Substance: ALENDRONIC ACID
     Dosage: THE TIME TO ONSET OF THE REACTIONS WAS 5 WEEKS
     Route: 048
     Dates: start: 20081114
  5. AZATHIOPRINE. [Suspect]
     Active Substance: AZATHIOPRINE
     Indication: IDIOPATHIC PULMONARY FIBROSIS
     Dosage: 125 MILLIGRAM DAILY;
     Route: 048
     Dates: start: 20081114, end: 20081226
  6. CANDESARTAN. [Concomitant]
     Active Substance: CANDESARTAN
  7. ATORVASTATIN [Concomitant]
     Active Substance: ATORVASTATIN
  8. OMEPRAZOLE. [Suspect]
     Active Substance: OMEPRAZOLE
     Route: 048
     Dates: start: 20081114

REACTIONS (4)
  - Neutropenia [Fatal]
  - Sepsis [Fatal]
  - Toxic epidermal necrolysis [Fatal]
  - Erythema [Fatal]

NARRATIVE: CASE EVENT DATE: 20081218
